FAERS Safety Report 5674348-7 (Version None)
Quarter: 2008Q1

REPORT INFORMATION
  Report Type: 
  Country: None (occurrence: None)
  Receive Date: 20080320
  Receipt Date: 20080307
  Transmission Date: 20080703
  Serious: Yes (Other)
  Sender: FDA-Public Use
  Company Number: US-AMGEN-QUU268642

PATIENT
  Sex: Female

DRUGS (13)
  1. NEULASTA [Suspect]
     Indication: CHEMOTHERAPY
     Route: 058
     Dates: start: 20080101
  2. FOLIC ACID [Concomitant]
     Route: 065
  3. ACYCLOVIR [Concomitant]
  4. FENTANYL [Concomitant]
     Route: 061
     Dates: start: 20080101
  5. PROVIGIL [Concomitant]
     Dates: start: 20080101
  6. DEXAMETHASONE TAB [Concomitant]
     Dates: start: 20080101
  7. ONDANSETRON [Concomitant]
     Dates: start: 20080101
  8. PROCHLORPERAZINE [Concomitant]
     Dates: start: 20080101
  9. SENOKOT [Concomitant]
  10. ADRIAMYCIN PFS [Concomitant]
     Route: 042
     Dates: start: 20080101
  11. CYCLOPHOSPHAMIDE [Concomitant]
     Route: 042
     Dates: start: 20080101
  12. VELCADE [Concomitant]
     Route: 042
     Dates: start: 20080101
  13. PROCRIT [Concomitant]
     Route: 058
     Dates: start: 20080101

REACTIONS (2)
  - DRUG INEFFECTIVE [None]
  - WHITE BLOOD CELL COUNT DECREASED [None]
